FAERS Safety Report 21103756 (Version 1)
Quarter: 2022Q3

REPORT INFORMATION
  Report Type: Spontaneous
  Country: US (occurrence: US)
  Receive Date: 20220720
  Receipt Date: 20220720
  Transmission Date: 20221026
  Serious: No
  Sender: FDA-Public Use
  Company Number: US-JNJFOC-20220727760

PATIENT
  Age: 68 Year
  Sex: Male

DRUGS (1)
  1. MENS ROGAINE EXTRA STRENGTH [Suspect]
     Active Substance: MINOXIDIL
     Indication: Alopecia
     Dosage: ONE DROPPER-FULL I THINK IT WAS ONE ML - TO THE LINE. TWICE A DAY AND FOUR OR FIVE MONTHS INTO THE U
     Route: 061
     Dates: start: 20210228

REACTIONS (2)
  - Application site rash [Recovered/Resolved]
  - Application site vesicles [Recovered/Resolved]

NARRATIVE: CASE EVENT DATE: 20210830
